FAERS Safety Report 25770965 (Version 1)
Quarter: 2025Q3

REPORT INFORMATION
  Report Type: Spontaneous
  Country: CN (occurrence: CN)
  Receive Date: 20250908
  Receipt Date: 20250908
  Transmission Date: 20251021
  Serious: Yes (Other)
  Sender: Teyro Labs
  Company Number: CN-TEYRO-2025-TY-000665

PATIENT

DRUGS (4)
  1. GEMCITABINE [Suspect]
     Active Substance: GEMCITABINE
     Indication: Biliary cancer metastatic
     Route: 065
  2. TISLELIZUMAB [Suspect]
     Active Substance: TISLELIZUMAB
     Indication: Biliary cancer metastatic
     Route: 042
  3. OCIPERLIMAB [Suspect]
     Active Substance: OCIPERLIMAB
     Indication: Biliary cancer metastatic
     Route: 042
  4. CISPLATIN [Suspect]
     Active Substance: CISPLATIN
     Indication: Biliary cancer metastatic
     Route: 065

REACTIONS (2)
  - Myocarditis [Unknown]
  - Off label use [Unknown]
